FAERS Safety Report 8622770-9 (Version None)
Quarter: 2012Q3

REPORT INFORMATION
  Report Type: 
  Country: None (occurrence: None)
  Receive Date: 20120827
  Receipt Date: 20120814
  Transmission Date: 20120928
  Serious: Yes (Congenital Anomaly)
  Sender: FDA-Public Use
  Company Number: US-JNJFOC-20120809212

PATIENT
  Sex: Female

DRUGS (2)
  1. RISPERDAL [Suspect]
     Indication: FOETAL EXPOSURE DURING PREGNANCY
     Route: 064
  2. ZOLOFT [Suspect]
     Indication: FOETAL EXPOSURE DURING PREGNANCY
     Route: 064

REACTIONS (12)
  - GASTROOESOPHAGEAL REFLUX DISEASE [None]
  - MITRAL VALVE INCOMPETENCE [None]
  - RESPIRATORY DISORDER [None]
  - CONSTIPATION [None]
  - MULTIPLE ALLERGIES [None]
  - RASH [None]
  - PREMATURE BABY [None]
  - PULMONARY ARTERY STENOSIS CONGENITAL [None]
  - CARDIAC MURMUR [None]
  - HEART DISEASE CONGENITAL [None]
  - ASTHMA [None]
  - FAECALOMA [None]
